FAERS Safety Report 8956255 (Version 1)
Quarter: 2012Q4

REPORT INFORMATION
  Report Type: 
  Country: US (occurrence: US)
  Receive Date: 20121210
  Receipt Date: 20121210
  Transmission Date: 20130627
  Serious: Yes (Hospitalization)
  Sender: FDA-Public Use
  Company Number: US-UCBSA-072584

PATIENT
  Sex: Female

DRUGS (2)
  1. VIMPAT [Suspect]
     Dosage: UNKNOWN DOSE
  2. VIMPAT [Suspect]
     Dosage: TITRATED UP TO 2OO MG BID

REACTIONS (1)
  - Bradycardia [Recovered/Resolved]
